FAERS Safety Report 11010018 (Version 1)
Quarter: 2015Q2

REPORT INFORMATION
  Report Type: Spontaneous
  Country: US (occurrence: US)
  Receive Date: 20150410
  Receipt Date: 20150410
  Transmission Date: 20150821
  Serious: No
  Sender: FDA-Public Use
  Company Number: US-ENDO PHARMACEUTICALS INC.-DIAZ20140009

PATIENT
  Sex: Female

DRUGS (1)
  1. DIAZEPAM 10MG [Suspect]
     Active Substance: DIAZEPAM
     Indication: MUSCLE RELAXANT THERAPY
     Route: 048

REACTIONS (2)
  - Hypoaesthesia [Unknown]
  - Drug ineffective [Unknown]

NARRATIVE: CASE EVENT DATE: 2014
